FAERS Safety Report 11468220 (Version 1)
Quarter: 2015Q3

REPORT INFORMATION
  Report Type: Spontaneous
  Country: US (occurrence: None)
  Receive Date: 20150904
  Receipt Date: 20150904
  Transmission Date: 20151125
  Serious: Yes (Other)
  Sender: FDA-Public Use
  Company Number: None

PATIENT
  Age: 11 Day
  Sex: Female
  Weight: 69.85 kg

DRUGS (10)
  1. XANAX [Concomitant]
     Active Substance: ALPRAZOLAM
  2. POTASSIUM [Concomitant]
     Active Substance: POTASSIUM
  3. LEXAPRO [Concomitant]
     Active Substance: ESCITALOPRAM OXALATE
  4. BIOTIN [Concomitant]
     Active Substance: BIOTIN
  5. 1 A DAY VITAMIN [Concomitant]
     Active Substance: VITAMINS
  6. ALDONE+FUROSEMIDE [Concomitant]
  7. DIOVAN [Concomitant]
     Active Substance: VALSARTAN
  8. OXYCODONE [Concomitant]
     Active Substance: OXYCODONE
  9. FLECANIDE [Suspect]
     Active Substance: FLECAINIDE
     Indication: ATRIAL FIBRILLATION
     Dosage: BY MOUTH
     Dates: start: 20150804, end: 20150814
  10. CALCIUM [Concomitant]
     Active Substance: CALCIUM

REACTIONS (8)
  - Peripheral swelling [None]
  - Weight increased [None]
  - Dyspnoea [None]
  - Mobility decreased [None]
  - Feeling abnormal [None]
  - Fluid retention [None]
  - Pain [None]
  - Swelling [None]

NARRATIVE: CASE EVENT DATE: 20150814
